FAERS Safety Report 23835503 (Version 2)
Quarter: 2024Q2

REPORT INFORMATION
  Report Type: Other
  Country: US (occurrence: None)
  Receive Date: 20240509
  Receipt Date: 20240517
  Transmission Date: 20240716
  Serious: Yes (Hospitalization)
  Sender: FDA-Public Use
  Company Number: US-ROCHE-3558799

PATIENT
  Age: 87 Year
  Sex: Female
  Weight: 75.84 kg

DRUGS (36)
  1. ACTEMRA [Suspect]
     Active Substance: TOCILIZUMAB
     Indication: Giant cell arteritis
     Route: 058
     Dates: start: 201912
  2. ACTEMRA [Suspect]
     Active Substance: TOCILIZUMAB
  3. ACTEMRA [Suspect]
     Active Substance: TOCILIZUMAB
  4. ACTEMRA [Suspect]
     Active Substance: TOCILIZUMAB
     Indication: Giant cell arteritis
  5. ACTEMRA [Suspect]
     Active Substance: TOCILIZUMAB
  6. ACTEMRA [Suspect]
     Active Substance: TOCILIZUMAB
  7. ACTEMRA [Suspect]
     Active Substance: TOCILIZUMAB
     Indication: Arteritis
  8. ACTEMRA [Suspect]
     Active Substance: TOCILIZUMAB
  9. ACTEMRA [Suspect]
     Active Substance: TOCILIZUMAB
  10. BISACODYL DELAYED RELEASE [Concomitant]
  11. COLACE [Concomitant]
     Active Substance: DOCUSATE SODIUM
  12. CYMBALTA [Concomitant]
     Active Substance: DULOXETINE HYDROCHLORIDE
  13. GABAPENTIN [Concomitant]
     Active Substance: GABAPENTIN
  14. GLUCAGON [Concomitant]
     Active Substance: GLUCAGON\GLUCAGON HYDROCHLORIDE\WATER
  15. GUAIFENESIN [Concomitant]
     Active Substance: GUAIFENESIN
  16. HYDROCODONE [Concomitant]
     Active Substance: HYDROCODONE
  17. IBUPROFEN [Concomitant]
     Active Substance: IBUPROFEN
  18. IPRATROPIUM [Concomitant]
     Active Substance: IPRATROPIUM
  19. LEVOTHYROXINE [Concomitant]
     Active Substance: LEVOTHYROXINE\LEVOTHYROXINE SODIUM
  20. LOPERMIDE [Concomitant]
  21. METOPROLOL [Concomitant]
     Active Substance: METOPROLOL
  22. MILK OF MAGNESIA [Concomitant]
     Active Substance: MAGNESIUM HYDROXIDE
  23. MIRTAZAPINE [Concomitant]
     Active Substance: MIRTAZAPINE
  24. PANTOPRAZOLE [Concomitant]
     Active Substance: PANTOPRAZOLE
  25. POLYETHYLENE GLYCOL [Concomitant]
     Active Substance: POLYETHYLENE GLYCOL
  26. POTASSIUM CHLORIDE [Concomitant]
     Active Substance: POTASSIUM CHLORIDE
  27. ROSUVASTATIN [Concomitant]
     Active Substance: ROSUVASTATIN
  28. TRAZODONE [Concomitant]
     Active Substance: TRAZODONE HYDROCHLORIDE
  29. TRESIBA [Concomitant]
     Active Substance: INSULIN DEGLUDEC
  30. WELLBUTRIN [Concomitant]
     Active Substance: BUPROPION HYDROCHLORIDE
  31. ASPIRIN [Concomitant]
     Active Substance: ASPIRIN
  32. MELATONIN [Concomitant]
     Active Substance: MELATONIN
  33. TYLENOL [Concomitant]
     Active Substance: ACETAMINOPHEN
  34. ROBAXIN [Concomitant]
     Active Substance: METHOCARBAMOL
  35. LOSARTAN [Concomitant]
     Active Substance: LOSARTAN
  36. NOVOLOG [Concomitant]
     Active Substance: INSULIN ASPART

REACTIONS (4)
  - C-reactive protein increased [Unknown]
  - Subdural haemorrhage [Unknown]
  - Spinal compression fracture [Unknown]
  - Urinary tract infection [Unknown]

NARRATIVE: CASE EVENT DATE: 20230711
